FAERS Safety Report 18774902 (Version 1)
Quarter: 2021Q1

REPORT INFORMATION
  Report Type: Report from Study
  Country: US (occurrence: US)
  Receive Date: 20210122
  Receipt Date: 20210122
  Transmission Date: 20210419
  Serious: Yes (Death, Hospitalization)
  Sender: FDA-Public Use
  Company Number: US-LOXO ONCOLOGY, INC.-USLOXO2018000321

PATIENT
  Age: 65 Year
  Sex: Male
  Weight: 93 kg

DRUGS (11)
  1. ASCORBIC ACID. [Concomitant]
     Active Substance: ASCORBIC ACID
     Indication: SUPPLEMENTATION THERAPY
     Dosage: 4000 MG, DAILY
     Route: 048
     Dates: start: 20171108
  2. ACETYLSALICYLIC ACID [Concomitant]
     Active Substance: ASPIRIN
     Indication: PRODUCT USED FOR UNKNOWN INDICATION
     Dosage: 81 MG, DAILY
     Route: 048
     Dates: start: 20180917
  3. UBIDECARENONE. [Concomitant]
     Active Substance: UBIDECARENONE
     Indication: SUPPLEMENTATION THERAPY
     Dosage: 1 TABLET, QD
     Route: 048
     Dates: start: 20171108
  4. EDOXABAN TOSILATE [Concomitant]
     Active Substance: EDOXABAN TOSYLATE
     Indication: THROMBOSIS PROPHYLAXIS
     Dosage: 60 MG, QD
     Route: 048
     Dates: start: 20180917
  5. METOPROLOL SUCCINATE. [Concomitant]
     Active Substance: METOPROLOL SUCCINATE
     Indication: HYPERTENSION
     Dosage: 50 MG, QD
     Route: 048
     Dates: start: 20181016
  6. COLECALCIFEROL BENFEROL [Concomitant]
     Indication: SUPPLEMENTATION THERAPY
     Dosage: 400 UNKNOWN UNIT, DAILY
     Route: 048
     Dates: start: 20171108, end: 20181119
  7. SELPERCATINIB. [Suspect]
     Active Substance: SELPERCATINIB
     Indication: NON-SMALL CELL LUNG CANCER
     Dosage: 160 MG, BID
     Route: 048
     Dates: start: 20181002, end: 20181015
  8. SELPERCATINIB. [Suspect]
     Active Substance: SELPERCATINIB
     Dosage: 160 MG, BID
     Route: 048
     Dates: start: 20181016, end: 20181028
  9. ATORVASTATIN [Concomitant]
     Active Substance: ATORVASTATIN
     Indication: HYPERLIPIDAEMIA
     Dosage: 40 MG, QD
     Route: 048
     Dates: start: 20171024, end: 20181105
  10. BENZONATATE. [Concomitant]
     Active Substance: BENZONATATE
     Indication: COUGH
     Dosage: 100 MG, TID
     Route: 048
     Dates: start: 20180430, end: 20181119
  11. VITAMINS NOS [Concomitant]
     Active Substance: VITAMINS
     Indication: SUPPLEMENTATION THERAPY
     Dosage: 1 CAPSULE, QD
     Route: 048
     Dates: start: 20171107

REACTIONS (1)
  - Drug-induced liver injury [Recovered/Resolved]

NARRATIVE: CASE EVENT DATE: 20181029
